FAERS Safety Report 9506933 (Version 4)
Quarter: 2013Q4

REPORT INFORMATION
  Report Type: Spontaneous
  Country: JP (occurrence: JP)
  Receive Date: 20130909
  Receipt Date: 20131121
  Transmission Date: 20140711
  Serious: Yes (Hospitalization, Other)
  Sender: FDA-Public Use
  Company Number: JP-ROCHE-1271256

PATIENT
  Age: 69 Year
  Sex: Male
  Weight: 62 kg

DRUGS (14)
  1. ACTEMRA [Suspect]
     Indication: RHEUMATOID ARTHRITIS
     Route: 041
     Dates: start: 20120726, end: 20130110
  2. ACTEMRA [Suspect]
     Route: 041
     Dates: start: 2013
  3. PREDNISOLONE [Concomitant]
     Indication: RHEUMATOID ARTHRITIS
     Route: 065
     Dates: start: 20120823, end: 2013
  4. PREDNISOLONE [Concomitant]
     Indication: RHEUMATOID ARTHRITIS
     Route: 065
     Dates: start: 2013
  5. MOBIC [Concomitant]
     Indication: RHEUMATOID ARTHRITIS
     Route: 065
     Dates: start: 201208
  6. TRAMCET [Concomitant]
     Indication: RHEUMATOID ARTHRITIS
     Route: 048
  7. RHEUMATREX [Concomitant]
     Indication: RHEUMATOID ARTHRITIS
     Route: 065
     Dates: start: 20130813
  8. BAYASPIRIN [Concomitant]
     Route: 048
  9. PLAVIX [Concomitant]
     Route: 048
  10. ANPLAG [Concomitant]
     Route: 048
  11. ROHYPNOL [Concomitant]
     Route: 048
  12. PARIET [Concomitant]
     Indication: PROPHYLAXIS
     Route: 048
  13. FOLIAMIN [Concomitant]
     Indication: PROPHYLAXIS
     Route: 048
     Dates: start: 20130815
  14. PRIMPERAN (JAPAN) [Concomitant]
     Indication: PROPHYLAXIS
     Route: 048

REACTIONS (4)
  - Pneumothorax spontaneous [Not Recovered/Not Resolved]
  - Peripheral arterial occlusive disease [Recovered/Resolved]
  - Necrotising fasciitis [Recovered/Resolved]
  - Cellulitis [Unknown]
